FAERS Safety Report 6302710-8 (Version None)
Quarter: 2009Q3

REPORT INFORMATION
  Report Type: 
  Country: None (occurrence: None)
  Receive Date: 20090810
  Receipt Date: 20090805
  Transmission Date: 20100115
  Serious: Yes (Life-Threatening)
  Sender: FDA-Public Use
  Company Number: PHHY2009BR20068

PATIENT
  Age: 33 Year
  Sex: Female
  Weight: 65 kg

DRUGS (2)
  1. VOLTAREN [Suspect]
     Indication: BACK PAIN
     Dosage: 75MG/3ML 5AMP
  2. VOLTAREN [Suspect]
     Indication: BONE PAIN

REACTIONS (5)
  - APPLICATION SITE DISCOLOURATION [None]
  - APPLICATION SITE IRRITATION [None]
  - APPLICATION SITE NECROSIS [None]
  - PAIN [None]
  - WOUND [None]
